FAERS Safety Report 21745859 (Version 2)
Quarter: 2022Q4

REPORT INFORMATION
  Report Type: Spontaneous
  Country: DE (occurrence: DE)
  Receive Date: 20221219
  Receipt Date: 20221230
  Transmission Date: 20230113
  Serious: Yes (Other)
  Sender: FDA-Public Use
  Company Number: None

PATIENT
  Age: 72 Year
  Sex: Male
  Weight: 73 kg

DRUGS (2)
  1. LACOSAMIDE [Interacting]
     Active Substance: LACOSAMIDE
     Indication: Epilepsy
     Dosage: 200 MILLIGRAM, ONCE DAILY (QD), 100 MILLIGRAM, BID (50MG 2-2)
     Dates: start: 20221123, end: 20221215
  2. JANUMET [Interacting]
     Active Substance: METFORMIN HYDROCHLORIDE\SITAGLIPTIN PHOSPHATE
     Indication: Product used for unknown indication
     Dosage: 1000MG/50MG, BID (ALSO REPORTED AS 1000 MG IN THE MORNING AND EVENING)
     Route: 048
     Dates: start: 2020

REACTIONS (3)
  - Epilepsy [Unknown]
  - Blood glucose increased [Recovering/Resolving]
  - Drug interaction [Unknown]

NARRATIVE: CASE EVENT DATE: 20221215
